FAERS Safety Report 5725846-9 (Version None)
Quarter: 2008Q2

REPORT INFORMATION
  Report Type: 
  Country: None (occurrence: None)
  Receive Date: 20080429
  Receipt Date: 20080410
  Transmission Date: 20081010
  Serious: No
  Sender: FDA-Public Use
  Company Number: 002#2#2008-00231

PATIENT
  Age: 79 Year
  Sex: Male
  Weight: 66.2252 kg

DRUGS (4)
  1. NEUPRO [Suspect]
     Indication: PARKINSON'S DISEASE
     Dosage: 2MG/24H,1 IN 1 D,TRANSDERMAL; 4MG/24H,1 IN 1 D,TRANSDERMAL; 6MG/24H.1 IN 1 TRANSDERMAL
     Route: 062
     Dates: start: 20080114, end: 20080120
  2. NEUPRO [Suspect]
     Indication: PARKINSON'S DISEASE
     Dosage: 2MG/24H,1 IN 1 D,TRANSDERMAL; 4MG/24H,1 IN 1 D,TRANSDERMAL; 6MG/24H.1 IN 1 TRANSDERMAL
     Route: 062
     Dates: start: 20080121, end: 20080127
  3. NEUPRO [Suspect]
     Indication: PARKINSON'S DISEASE
     Dosage: 2MG/24H,1 IN 1 D,TRANSDERMAL; 4MG/24H,1 IN 1 D,TRANSDERMAL; 6MG/24H.1 IN 1 TRANSDERMAL
     Route: 062
     Dates: start: 20080128, end: 20080129
  4. NEUPRO [Suspect]
     Indication: PARKINSON'S DISEASE
     Dosage: 2MG/24H,1 IN 1 D,TRANSDERMAL; 4MG/24H,1 IN 1 D,TRANSDERMAL; 6MG/24H.1 IN 1 TRANSDERMAL
     Route: 062
     Dates: start: 20080130

REACTIONS (6)
  - APPLICATION SITE PRURITUS [None]
  - APPLICATION SITE REACTION [None]
  - DISORIENTATION [None]
  - HALLUCINATION [None]
  - PAIN [None]
  - PHARMACEUTICAL PRODUCT COMPLAINT [None]
